FAERS Safety Report 11877061 (Version 4)
Quarter: 2016Q3

REPORT INFORMATION
  Report Type: Spontaneous
  Country: US (occurrence: US)
  Receive Date: 20151229
  Receipt Date: 20160726
  Transmission Date: 20161109
  Serious: No
  Sender: FDA-Public Use
  Company Number: US-AKRIMAX-TIR-2015-0490

PATIENT
  Age: 67 Year
  Sex: Male
  Weight: 81.72 kg

DRUGS (4)
  1. TIROSINT [Suspect]
     Active Substance: LEVOTHYROXINE SODIUM
     Indication: HYPOTHYROIDISM
     Route: 048
  2. TIROSINT [Suspect]
     Active Substance: LEVOTHYROXINE SODIUM
     Indication: HYPOTHYROIDISM
     Dosage: ONCE DAILY
     Route: 048
     Dates: start: 2016
  3. TRYPTOPHAN [Concomitant]
     Active Substance: TRYPTOPHAN
     Indication: PRODUCT USED FOR UNKNOWN INDICATION
  4. TIROSINT [Suspect]
     Active Substance: LEVOTHYROXINE SODIUM
     Indication: HYPOTHYROIDISM
     Dosage: ONE 13MCG CAPSULE DAILY
     Route: 048
     Dates: start: 201510

REACTIONS (3)
  - Insomnia [Unknown]
  - Thyroid function test abnormal [Unknown]
  - Thyroid function test abnormal [Unknown]

NARRATIVE: CASE EVENT DATE: 201510
